FAERS Safety Report 7971369-6 (Version None)
Quarter: 2011Q4

REPORT INFORMATION
  Report Type: 
  Country: None (occurrence: None)
  Receive Date: 20111123
  Receipt Date: 20110726
  Transmission Date: 20120403
  Serious: Yes (Death)
  Sender: FDA-Public Use
  Company Number: 1000022483

PATIENT
  Age: 89 Year
  Sex: Male

DRUGS (7)
  1. PLAVIX [Concomitant]
  2. DALIRESP [Suspect]
     Indication: CHRONIC OBSTRUCTIVE PULMONARY DISEASE
     Dosage: 500 MCG (500 MCG, 1 IN 1 D), ORAL
     Route: 048
     Dates: start: 20110623, end: 20110722
  3. NASAL SPRAYS (NOS) [Concomitant]
  4. ASTHMA MEDICATIONS (NOS) [Concomitant]
  5. PREDNISONE TAB [Concomitant]
  6. SPIRIVA [Concomitant]
  7. ADVAIR HFA [Concomitant]

REACTIONS (1)
  - DEATH [None]
